FAERS Safety Report 21978301 (Version 2)
Quarter: 2023Q2

REPORT INFORMATION
  Report Type: Spontaneous
  Country: ES (occurrence: ES)
  Receive Date: 20230210
  Receipt Date: 20230502
  Transmission Date: 20230722
  Serious: Yes (Other)
  Sender: FDA-Public Use
  Company Number: ES-PFIZER INC-PV202300024357

PATIENT
  Sex: Female

DRUGS (6)
  1. PALBOCICLIB [Suspect]
     Active Substance: PALBOCICLIB
     Dosage: 125 MG, DAILY. DAY 1-21 / 28 DAYS.
     Dates: start: 20180115
  2. PALBOCICLIB [Suspect]
     Active Substance: PALBOCICLIB
     Dosage: 100 MG, 3 WEEKS ON, 1 WEEK OFF.
     Dates: start: 20181216
  3. PALBOCICLIB [Suspect]
     Active Substance: PALBOCICLIB
     Dosage: UNK
     Dates: end: 20221025
  4. ZOLEDRONIC ACID [Suspect]
     Active Substance: ZOLEDRONIC ACID
     Dosage: QUARTERLY
     Dates: start: 20171222
  5. GOSERELIN [Suspect]
     Active Substance: GOSERELIN
     Dosage: MONTHLY
     Dates: start: 20171222
  6. FULVESTRANT [Suspect]
     Active Substance: FULVESTRANT
     Dosage: 500
     Dates: start: 20171222

REACTIONS (6)
  - Neutropenia [Recovered/Resolved]
  - Neutrophil count decreased [Recovered/Resolved]
  - Neutrophil count decreased [Recovered/Resolved]
  - Alopecia [Unknown]
  - Musculoskeletal discomfort [Unknown]
  - Neoplasm progression [Unknown]

NARRATIVE: CASE EVENT DATE: 20180312
